FAERS Safety Report 7819921-2 (Version None)
Quarter: 2011Q4

REPORT INFORMATION
  Report Type: 
  Country: None (occurrence: None)
  Receive Date: 20111018
  Receipt Date: 20100804
  Transmission Date: 20120403
  Serious: No
  Sender: FDA-Public Use
  Company Number: US-ASTRAZENECA-2010SE36452

PATIENT
  Age: 53 Year
  Sex: Female

DRUGS (4)
  1. ALBUTEROL [Concomitant]
  2. SYMBICORT [Suspect]
     Indication: ASTHMA
     Dosage: ONE PUFF BID
     Route: 055
  3. ALLEGRA [Concomitant]
  4. SYNTHROID [Concomitant]

REACTIONS (8)
  - HYPERTENSION [None]
  - NAUSEA [None]
  - HYPERSENSITIVITY [None]
  - PRODUCTIVE COUGH [None]
  - VOMITING [None]
  - TACHYCARDIA [None]
  - WRONG DRUG ADMINISTERED [None]
  - HYPERHIDROSIS [None]
